FAERS Safety Report 13212418 (Version 2)
Quarter: 2017Q1

REPORT INFORMATION
  Report Type: Spontaneous
  Country: US (occurrence: US)
  Receive Date: 20170210
  Receipt Date: 20170307
  Transmission Date: 20170428
  Serious: Yes (Other)
  Sender: FDA-Public Use
  Company Number: US-PFIZER INC-2017060870

PATIENT
  Age: 72 Year
  Sex: Female
  Weight: 50 kg

DRUGS (3)
  1. LYRICA [Suspect]
     Active Substance: PREGABALIN
     Dosage: 200 MG, 2X/DAY
  2. LYRICA [Suspect]
     Active Substance: PREGABALIN
     Dosage: UNK, 2X/DAY
     Dates: start: 201606
  3. LYRICA [Suspect]
     Active Substance: PREGABALIN
     Indication: NEUROPATHY PERIPHERAL
     Dosage: 200 MG, 2X/DAY
     Route: 048

REACTIONS (6)
  - Dysphagia [Unknown]
  - Weight abnormal [Unknown]
  - Cough [Unknown]
  - Tonsillar neoplasm [Unknown]
  - Intentional product misuse [Unknown]
  - Feeding disorder [Unknown]

NARRATIVE: CASE EVENT DATE: 201604
